FAERS Safety Report 9951446 (Version 2)
Quarter: 2014Q1

REPORT INFORMATION
  Report Type: Report from Study
  Country: US (occurrence: US)
  Receive Date: 20140304
  Receipt Date: 20140304
  Transmission Date: 20141002
  Serious: Yes (Life-Threatening)
  Sender: FDA-Public Use
  Company Number: US-ABBVIE-13P-163-1070990-00

PATIENT
  Age: 49 Year
  Sex: Female

DRUGS (1)
  1. HUMIRA [Suspect]
     Indication: PSORIATIC ARTHROPATHY

REACTIONS (6)
  - Encephalitis meningococcal [Unknown]
  - Infection [Unknown]
  - Infection [Unknown]
  - Pain [Unknown]
  - Drug ineffective [Unknown]
  - Endocarditis [Unknown]
